FAERS Safety Report 7820552-9 (Version None)
Quarter: 2011Q4

REPORT INFORMATION
  Report Type: 
  Country: None (occurrence: None)
  Receive Date: 20111018
  Receipt Date: 20111006
  Transmission Date: 20120403
  Serious: Yes (Hospitalization, Other)
  Sender: FDA-Public Use
  Company Number: PHHY2011BR88681

PATIENT
  Sex: Male

DRUGS (5)
  1. AMLODIPINE [Concomitant]
     Indication: BLOOD PRESSURE
     Dosage: UNK
     Dates: start: 20110301
  2. DIOVAN HCT [Suspect]
     Indication: HYPERTENSION
     Dosage: 1 DF(VALSARTAN 320 MG/HYDROCHLOROTHIAZIDE 25MG), A DAY
  3. LEXOTAN [Concomitant]
     Dosage: UNK,
  4. ALDOMET [Concomitant]
     Indication: BLOOD PRESSURE
     Dosage: UNK,
     Dates: start: 20110301
  5. LOSARTAN POTASSIUM [Concomitant]
     Indication: ANTICOAGULANT THERAPY
     Dosage: UNK,
     Dates: start: 20110301

REACTIONS (2)
  - INFARCTION [None]
  - HYPERGLYCAEMIA [None]
